FAERS Safety Report 24977179 (Version 1)
Quarter: 2025Q1

REPORT INFORMATION
  Report Type: Report from Study
  Country: US (occurrence: US)
  Receive Date: 20250217
  Receipt Date: 20250217
  Transmission Date: 20250409
  Serious: Yes (Death)
  Sender: BAYER HEALTHCARE PHARMACEUTICALS INC.
  Company Number: US-BAYER-2025A022405

PATIENT
  Age: 68 Year
  Sex: Male
  Weight: 63.492 kg

DRUGS (12)
  1. ADEMPAS [Suspect]
     Active Substance: RIOCIGUAT
     Indication: Pulmonary arterial hypertension
     Dates: start: 20220511
  2. ADEMPAS [Suspect]
     Active Substance: RIOCIGUAT
     Indication: Pulmonary arterial hypertension
     Dosage: 2.5 MG, TID
     Route: 048
  3. FEBUXOSTAT [Concomitant]
     Active Substance: FEBUXOSTAT
  4. CLONAZEPAM [Concomitant]
     Active Substance: CLONAZEPAM
  5. ELIQUIS [Concomitant]
     Active Substance: APIXABAN
  6. VITAMIN D2 [Concomitant]
     Active Substance: ERGOCALCIFEROL
  7. PROPAFENONE HCL [Concomitant]
     Active Substance: PROPAFENONE HYDROCHLORIDE
  8. CALCITRIOL [Concomitant]
     Active Substance: CALCITRIOL
  9. HYDROXYUREA [Concomitant]
     Active Substance: HYDROXYUREA
  10. PREDNISONE [Concomitant]
     Active Substance: PREDNISONE
  11. FUROSEMIDE [Concomitant]
     Active Substance: FUROSEMIDE
  12. IRON\VITAMINS [Concomitant]
     Active Substance: IRON\VITAMINS

REACTIONS (1)
  - Death [Fatal]

NARRATIVE: CASE EVENT DATE: 20250131
